FAERS Safety Report 4665159-X (Version None)
Quarter: 2005Q2

REPORT INFORMATION
  Report Type: 
  Country: None (occurrence: None)
  Receive Date: 20050517
  Receipt Date: 20050506
  Transmission Date: 20051028
  Serious: Yes (Life-Threatening, Hospitalization, Other)
  Sender: FDA-Public Use
  Company Number: 2005061164

PATIENT
  Age: 86 Year
  Sex: Female

DRUGS (3)
  1. TRIAZOLAM [Suspect]
     Indication: INSOMNIA
     Dosage: ORAL
     Route: 048
     Dates: start: 20020901, end: 20030316
  2. METHYLPREDNISOLONE [Suspect]
     Indication: TOXIC EPIDERMAL NECROLYSIS
     Dosage: 1000 MG, INTRAVENOUS
     Route: 042
     Dates: start: 20030317, end: 20030319
  3. PROBENECID [Suspect]
     Indication: HYPERURICAEMIA
     Dosage: ORAL
     Route: 048
     Dates: start: 20030208, end: 20030316

REACTIONS (20)
  - ANAEMIA [None]
  - BLOOD LACTATE DEHYDROGENASE INCREASED [None]
  - BLOOD UREA NITROGEN/CREATININE RATIO INCREASED [None]
  - CANDIDIASIS [None]
  - CHOLECYSTITIS ACUTE [None]
  - CLOSTRIDIUM COLITIS [None]
  - CONDITION AGGRAVATED [None]
  - DIVERTICULUM INTESTINAL HAEMORRHAGIC [None]
  - EROSIVE OESOPHAGITIS [None]
  - FLUID RETENTION [None]
  - GASTRITIS EROSIVE [None]
  - HYPOPROTEINAEMIA [None]
  - MELAENA [None]
  - MUSCULAR WEAKNESS [None]
  - PLEURAL EFFUSION [None]
  - PNEUMONIA [None]
  - SEPSIS [None]
  - STAPHYLOCOCCAL INFECTION [None]
  - TOXIC EPIDERMAL NECROLYSIS [None]
  - URINARY TRACT INFECTION [None]
